FAERS Safety Report 8393396-X (Version None)
Quarter: 2012Q2

REPORT INFORMATION
  Report Type: 
  Country: None (occurrence: None)
  Receive Date: 20120529
  Receipt Date: 20120524
  Transmission Date: 20120825
  Serious: No
  Sender: FDA-Public Use
  Company Number: US-PFIZER INC-2012126601

PATIENT
  Sex: Female
  Weight: 104 kg

DRUGS (3)
  1. NEURONTIN [Suspect]
     Indication: RESTLESS LEGS SYNDROME
     Dosage: 100 MG, 1X/DAY
     Route: 048
     Dates: start: 20100101
  2. NEURONTIN [Suspect]
     Dosage: 300 MG, 1X/DAY
     Route: 048
  3. NAPROXEN [Concomitant]
     Indication: ARTHRITIS
     Dosage: 500 MG, 2X/DAY

REACTIONS (5)
  - COORDINATION ABNORMAL [None]
  - ANGER [None]
  - DRUG INEFFECTIVE [None]
  - DYSKINESIA [None]
  - IRRITABILITY [None]
